FAERS Safety Report 24721385 (Version 2)
Quarter: 2024Q4

REPORT INFORMATION
  Report Type: Spontaneous
  Country: JP (occurrence: JP)
  Receive Date: 20241211
  Receipt Date: 20241217
  Transmission Date: 20250115
  Serious: Yes (Life-Threatening, Hospitalization, Other)
  Sender: PFIZER
  Company Number: JP-PFIZER INC-202400318359

PATIENT
  Age: 5 Decade
  Sex: Male

DRUGS (1)
  1. BOSULIF [Suspect]
     Active Substance: BOSUTINIB MONOHYDRATE
     Indication: Chronic myeloid leukaemia
     Dosage: 200 MG
     Route: 048

REACTIONS (4)
  - Pancreatitis acute [Unknown]
  - Hepatic enzyme increased [Unknown]
  - Off label use [Unknown]
  - Wrong technique in product usage process [Unknown]
